FAERS Safety Report 6898902-X (Version None)
Quarter: 2010Q3

REPORT INFORMATION
  Report Type: 
  Country: None (occurrence: None)
  Receive Date: 20100802
  Receipt Date: 20071207
  Transmission Date: 20110219
  Serious: No
  Sender: FDA-Public Use
  Company Number: US-PFIZER INC-2007104875

PATIENT
  Sex: Male
  Weight: 33 kg

DRUGS (12)
  1. LYRICA [Suspect]
     Indication: PAIN
     Dates: start: 20061206
  2. GLYCERYL TRINITRATE [Concomitant]
  3. ACTOS [Concomitant]
  4. PRAVACHOL [Concomitant]
  5. CORDARONE [Concomitant]
  6. UROXATRAL [Concomitant]
  7. TOPROL-XL [Concomitant]
  8. MACROGOL [Concomitant]
  9. PROCRIT [Concomitant]
  10. AZOPT [Concomitant]
  11. LASIX [Concomitant]
  12. OXYCODONE [Concomitant]
     Dates: start: 20071206

REACTIONS (2)
  - DRUG INTOLERANCE [None]
  - HANGOVER [None]
